FAERS Safety Report 9550035 (Version 3)
Quarter: 2014Q2

REPORT INFORMATION
  Report Type: Spontaneous
  Country: DE (occurrence: DE)
  Receive Date: 20130924
  Receipt Date: 20140417
  Transmission Date: 20141212
  Serious: Yes (Hospitalization)
  Sender: FDA-Public Use
  Company Number: DE-GLAXOSMITHKLINE-D0081152A

PATIENT
  Sex: Male

DRUGS (2)
  1. NARAMIG [Suspect]
     Indication: MIGRAINE
     Dosage: 2.5MG SEE DOSAGE TEXT
     Route: 048
  2. IMIGRAN NASAL SPRAY [Concomitant]
     Indication: HEADACHE
     Route: 045

REACTIONS (15)
  - Heart rate increased [Unknown]
  - Chills [Unknown]
  - Feeling hot [Unknown]
  - Dizziness [Unknown]
  - Abdominal distension [Unknown]
  - Swelling face [Unknown]
  - Renal pain [Unknown]
  - Dyspnoea [Unknown]
  - Vitamin B complex deficiency [Recovered/Resolved]
  - Gastritis [Unknown]
  - Flatulence [Recovered/Resolved]
  - Dyspepsia [Unknown]
  - Abdominal pain upper [Recovered/Resolved]
  - Headache [Recovering/Resolving]
  - Intentional product misuse [Unknown]
